FAERS Safety Report 18212833 (Version 1)
Quarter: 2020Q3

REPORT INFORMATION
  Report Type: Spontaneous
  Country: US (occurrence: US)
  Receive Date: 20200831
  Receipt Date: 20200831
  Transmission Date: 20201103
  Serious: Yes (Hospitalization, Other)
  Sender: FDA-Public Use
  Company Number: US-PFIZER INC-2020328529

PATIENT
  Sex: Female

DRUGS (23)
  1. BENADRYL [Concomitant]
     Active Substance: DIPHENHYDRAMINE HYDROCHLORIDE
     Dosage: UNK
  2. CEFEPIME [Concomitant]
     Active Substance: CEFEPIME HYDROCHLORIDE
     Indication: SEPSIS
     Dosage: UNK, 1X/DAY
  3. METHOTREXATE SODIUM. [Suspect]
     Active Substance: METHOTREXATE SODIUM
     Dosage: UNK
     Route: 037
  4. PEG/L?ASPARAGINASE [Suspect]
     Active Substance: PEGASPARGASE
     Dosage: UNK
     Route: 037
  5. HYDRALAZINE [Concomitant]
     Active Substance: HYDRALAZINE HYDROCHLORIDE
     Dosage: UNK
  6. MAGNESIUM SULFATE. [Concomitant]
     Active Substance: MAGNESIUM SULFATE
     Dosage: UNK
  7. DEXAMETHASONE. [Suspect]
     Active Substance: DEXAMETHASONE
     Dosage: UNK
  8. TYLENOL [Concomitant]
     Active Substance: ACETAMINOPHEN
     Dosage: UNK
  9. GAMMAGARD [Concomitant]
     Active Substance: HUMAN IMMUNOGLOBULIN G
     Dosage: UNK
  10. HYDROCORTISONE SODIUM SUCCINATE [Concomitant]
     Active Substance: HYDROCORTISONE SODIUM SUCCINATE
     Dosage: UNK
  11. SODIUM PHOSPHATE [Concomitant]
     Active Substance: SODIUM PHOSPHATE
     Dosage: UNK
  12. VINCRISTINE SULFATE. [Suspect]
     Active Substance: VINCRISTINE SULFATE
     Dosage: UNK
  13. FAMOTIDINE. [Concomitant]
     Active Substance: FAMOTIDINE
     Dosage: UNK
  14. AMIKACIN. [Concomitant]
     Active Substance: AMIKACIN
     Dosage: UNK
  15. PANTOPRAZOLE [Concomitant]
     Active Substance: PANTOPRAZOLE
     Dosage: UNK
  16. MORPHINE [Concomitant]
     Active Substance: MORPHINE
     Dosage: UNK
  17. POLYETHYLENE GLYCOL [MACROGOL] [Concomitant]
     Active Substance: POLYETHYLENE GLYCOLS
     Dosage: UNK
  18. ZOFRAN [Concomitant]
     Active Substance: ONDANSETRON HYDROCHLORIDE
     Dosage: UNK
  19. POTASSIUM ACETATE. [Concomitant]
     Active Substance: POTASSIUM ACETATE
     Dosage: UNK
  20. ARA?C [Suspect]
     Active Substance: CYTARABINE
     Dosage: UNK
     Route: 037
  21. VANCOMYCIN [Concomitant]
     Active Substance: VANCOMYCIN
     Dosage: UNK
  22. METRONIDAZOLE. [Concomitant]
     Active Substance: METRONIDAZOLE
     Dosage: UNK
  23. POTASSIUM CHLORIDE. [Concomitant]
     Active Substance: POTASSIUM CHLORIDE
     Dosage: UNK

REACTIONS (20)
  - Sepsis [Recovered/Resolved]
  - Pancreatitis [Recovered/Resolved]
  - Abdominal tenderness [Unknown]
  - Guillain-Barre syndrome [Not Recovered/Not Resolved]
  - Abdominal distension [Unknown]
  - Ileus [Recovered/Resolved]
  - Febrile neutropenia [Unknown]
  - Muscular weakness [Unknown]
  - Weight decreased [Unknown]
  - Pancreatic pseudocyst [Unknown]
  - Encephalopathy [Recovered/Resolved]
  - Cytomegalovirus infection [Recovered/Resolved]
  - Pneumonia [Recovered/Resolved]
  - Neutrophil count decreased [Unknown]
  - Pyrexia [Unknown]
  - Fatigue [Unknown]
  - Pancreatic abscess [Unknown]
  - Decreased appetite [Unknown]
  - Irritability [Unknown]
  - Abdominal pain [Unknown]

NARRATIVE: CASE EVENT DATE: 20180719
